FAERS Safety Report 25722756 (Version 2)
Quarter: 2025Q4

REPORT INFORMATION
  Report Type: Report from Study
  Country: US (occurrence: US)
  Receive Date: 20250825
  Receipt Date: 20251010
  Transmission Date: 20260118
  Serious: Yes (Other)
  Sender: TEVA
  Company Number: US-TEVA-VS-3360366

PATIENT
  Age: 66 Year
  Sex: Female
  Weight: 75 kg

DRUGS (3)
  1. AZILECT [Suspect]
     Active Substance: RASAGILINE MESYLATE
     Indication: Parkinson^s disease
     Dosage: 1 TABLET
     Route: 048
     Dates: start: 2012
  2. SINEMET [Suspect]
     Active Substance: CARBIDOPA\LEVODOPA
     Indication: Parkinson^s disease
     Dosage: DOSE: 25 - 100MG (1 TABLET), FREQUENCY: 2 AT 6AM, 1.5 AT 9AM, 1 AT NOON, 1.5?AT 3PM, 1 AT 9PM, 1 ...
     Route: 048
     Dates: start: 201010
  3. MIRAPEX [Suspect]
     Active Substance: PRAMIPEXOLE DIHYDROCHLORIDE
     Indication: Dopaminergic drug therapy
     Dosage: 1 TABLET
     Route: 048
     Dates: start: 2014

REACTIONS (9)
  - Parkinsonism [Recovered/Resolved]
  - Tremor [Recovered/Resolved]
  - Drug withdrawal syndrome [Recovered/Resolved]
  - Product dose omission in error [Unknown]
  - Fatigue [Recovered/Resolved]
  - Rapid eye movements sleep abnormal [Unknown]
  - Blood pressure fluctuation [Unknown]
  - Insomnia [Unknown]
  - Inappropriate schedule of product administration [Unknown]
